FAERS Safety Report 20137868 (Version 1)
Quarter: 2021Q4

REPORT INFORMATION
  Report Type: Other
  Country: IE (occurrence: IE)
  Receive Date: 20211202
  Receipt Date: 20211202
  Transmission Date: 20220303
  Serious: Yes (Other)
  Sender: FDA-Public Use
  Company Number: IE-CELLTRION INC.-2021IE016237

PATIENT

DRUGS (5)
  1. TRUXIMA [Suspect]
     Active Substance: RITUXIMAB-ABBS
     Indication: Nephrotic syndrome
     Dosage: UNK, SECOND COURSE
     Dates: start: 202008
  2. TRUXIMA [Suspect]
     Active Substance: RITUXIMAB-ABBS
     Dosage: 520 MG, MONTHLY, THIRD COURSE
     Route: 042
     Dates: start: 20210929, end: 20211028
  3. TRUXIMA [Suspect]
     Active Substance: RITUXIMAB-ABBS
     Dosage: UNK, FIRST COURSE
     Dates: start: 201811
  4. Losec MUPS 20 mg gastro-resistant tablets [Concomitant]
     Indication: Prophylaxis
     Dosage: 20 MG, QD (PHARMACEUTICAL DOSE FORM: GASTRO-RESISTANT TABLET)
  5. TACROLIMUS [Concomitant]
     Active Substance: TACROLIMUS
     Indication: Nephrotic syndrome
     Dosage: 1.4MG BD, EVERY 12 HOURS

REACTIONS (2)
  - Neutropenia [Not Recovered/Not Resolved]
  - Off label use [Unknown]

NARRATIVE: CASE EVENT DATE: 20211028
